FAERS Safety Report 4351964-6 (Version None)
Quarter: 2004Q2

REPORT INFORMATION
  Report Type: 
  Country: None (occurrence: None)
  Receive Date: 20040429
  Receipt Date: 20040126
  Transmission Date: 20050107
  Serious: No
  Sender: FDA-Public Use
  Company Number: 2004-112879-NL

PATIENT
  Age: 40 Year
  Sex: Female
  Weight: 68 kg

DRUGS (4)
  1. NUVARING [Suspect]
     Indication: CONTRACEPTION
     Dosage: DF DAILY VAGINAL
     Route: 067
     Dates: start: 20030201
  2. ECCHINACEA [Concomitant]
  3. FIORINAL [Concomitant]
  4. MAXALT [Concomitant]

REACTIONS (6)
  - GINGIVAL PAIN [None]
  - MIGRAINE [None]
  - MOTION SICKNESS [None]
  - VAGINAL MYCOSIS [None]
  - VULVOVAGINAL DISCOMFORT [None]
  - WEIGHT INCREASED [None]
